FAERS Safety Report 5806581-5 (Version None)
Quarter: 2008Q3

REPORT INFORMATION
  Report Type: 
  Country: None (occurrence: None)
  Receive Date: 20080710
  Receipt Date: 20080627
  Transmission Date: 20090109
  Serious: Yes (Other)
  Sender: FDA-Public Use
  Company Number: PHHY2008FR12520

PATIENT
  Age: 77 Year
  Sex: Female

DRUGS (4)
  1. ZOLEDRONIC ACID [Suspect]
     Indication: OSTEOPOROSIS
     Dosage: UNK
     Dates: start: 20080525
  2. VALSARTAN AND HYDROCHLOROTHIAZIDE [Concomitant]
  3. FENOFIBRATE [Concomitant]
  4. SOTALOL HCL [Concomitant]

REACTIONS (4)
  - HYPERSENSITIVITY [None]
  - RASH PAPULAR [None]
  - SKIN EXFOLIATION [None]
  - TOXIC SKIN ERUPTION [None]
